FAERS Safety Report 9888680 (Version 2)
Quarter: 2014Q1

REPORT INFORMATION
  Report Type: Spontaneous
  Country: FR (occurrence: FR)
  Receive Date: 20140211
  Receipt Date: 20140325
  Transmission Date: 20141002
  Serious: Yes (Hospitalization)
  Sender: FDA-Public Use
  Company Number: FR-ASTRAZENECA-2014SE07629

PATIENT
  Age: 57 Year
  Sex: Male

DRUGS (2)
  1. CAPRELSA [Suspect]
     Indication: THYROID CANCER METASTATIC
     Route: 048
     Dates: start: 201212, end: 20140109
  2. CAPRELSA [Suspect]
     Indication: THYROID CANCER METASTATIC
     Dosage: 200 MG THE DAY AFTER
     Route: 048
     Dates: start: 201212, end: 20140109

REACTIONS (1)
  - Renal ischaemia [Unknown]
